FAERS Safety Report 9758373 (Version 2)
Quarter: 2013Q4

REPORT INFORMATION
  Report Type: Report from Study
  Country: JP (occurrence: JP)
  Receive Date: 20131216
  Receipt Date: 20131230
  Transmission Date: 20140711
  Serious: Yes (Hospitalization)
  Sender: FDA-Public Use
  Company Number: JP-SA-2013SA127544

PATIENT
  Age: 47 Year
  Sex: Female
  Weight: 64.6 kg

DRUGS (4)
  1. INSULIN GLARGINE [Suspect]
     Indication: TYPE 1 DIABETES MELLITUS
     Route: 058
     Dates: start: 20120810, end: 20131125
  2. INSULIN LISPRO [Suspect]
     Indication: TYPE 1 DIABETES MELLITUS
     Route: 058
     Dates: start: 20120810, end: 20131125
  3. NU-LOTAN [Concomitant]
     Indication: HYPERTENSION
     Dates: start: 20100413
  4. FERROMIA [Concomitant]
     Indication: IRON DEFICIENCY ANAEMIA

REACTIONS (1)
  - Hyperthermia [Recovering/Resolving]
